FAERS Safety Report 21741447 (Version 5)
Quarter: 2023Q1

REPORT INFORMATION
  Report Type: Spontaneous
  Country: IT (occurrence: IT)
  Receive Date: 20221216
  Receipt Date: 20230201
  Transmission Date: 20230418
  Serious: Yes (Other)
  Sender: FDA-Public Use
  Company Number: IT-ROCHE-3230875

PATIENT
  Age: 45 Year
  Sex: Female

DRUGS (13)
  1. BENDAMUSTINE HYDROCHLORIDE [Suspect]
     Active Substance: BENDAMUSTINE HYDROCHLORIDE
     Indication: Diffuse large B-cell lymphoma
     Dosage: (2ND LINE SYSTEMIC TREATMENT)
     Route: 042
     Dates: start: 20220412, end: 20220510
  2. ETOPOSIDE [Suspect]
     Active Substance: ETOPOSIDE
     Indication: Diffuse large B-cell lymphoma
     Dosage: (1ST LINE SYSTEMIC TREATMENT, RITUXIMAB-M-CODOX-IVAC)
     Route: 065
     Dates: start: 20210626, end: 20210929
  3. LENALIDOMIDE [Suspect]
     Active Substance: LENALIDOMIDE
     Indication: Diffuse large B-cell lymphoma
     Dosage: (4TH LINE SYSTEMIC TREATMENT, LENALIDOMIDE PLUS RITUXIMAB)
     Route: 065
     Dates: start: 20221104
  4. METHOTREXATE [Suspect]
     Active Substance: METHOTREXATE
     Indication: Diffuse large B-cell lymphoma
     Dosage: (1ST LINE SYSTEMIC TREATMENT, RITUXIMAB-M-CODOX-IVAC)
     Route: 065
     Dates: start: 20210626, end: 20210929
  5. DOXORUBICIN [Suspect]
     Active Substance: DOXORUBICIN
     Indication: Diffuse large B-cell lymphoma
     Dosage: (1ST LINE SYSTEMIC TREATMENT, RITUXIMAB-M-CODOX-IVAC)
     Route: 065
     Dates: start: 20210626, end: 20210929
  6. VINCRISTINE [Suspect]
     Active Substance: VINCRISTINE
     Indication: Diffuse large B-cell lymphoma
     Dosage: (1ST LINE SYSTEMIC TREATMENT, RITUXIMAB-M-CODOX-IVAC)
     Route: 065
     Dates: start: 20210626, end: 20210929
  7. POLIVY [Suspect]
     Active Substance: POLATUZUMAB VEDOTIN-PIIQ
     Indication: Diffuse large B-cell lymphoma
     Dosage: (2ND LINE SYSTEMIC TREATMENT, RITUXIMAB-BENDAMUSTINE-POLATUZUMAB)
     Route: 065
     Dates: start: 20220412, end: 20220510
  8. RITUXIMAB [Suspect]
     Active Substance: RITUXIMAB
     Indication: Diffuse large B-cell lymphoma
     Dosage: (1ST SYSTEMIC TREATMENT, RITUXIMAB-M-CODOX-IVAC)
     Route: 065
     Dates: start: 20210626, end: 20210929
  9. RITUXIMAB [Suspect]
     Active Substance: RITUXIMAB
     Dosage: (2ND LINE SYSTEMIC TREATMENT, RITUXIMAB-BENDAMUSTINE-POLATUZUMAB)
     Route: 065
     Dates: start: 20220412, end: 20220510
  10. RITUXIMAB [Suspect]
     Active Substance: RITUXIMAB
     Dosage: (4TH LINE SYSTEMIC TREATMENT, LENALIDOMIDE PLUS RITUXIMAB)
     Route: 065
     Dates: start: 20221104
  11. CYCLOPHOSPHAMIDE [Suspect]
     Active Substance: CYCLOPHOSPHAMIDE
     Indication: Diffuse large B-cell lymphoma
     Dosage: (1ST LINE SYSTEMIC TREATMENT, RITUXIMAB-M-CODOX-IVAC)
     Route: 065
     Dates: start: 20210626, end: 20210929
  12. CYTARABINE [Suspect]
     Active Substance: CYTARABINE
     Indication: Diffuse large B-cell lymphoma
     Dosage: (1ST LINE SYSTEMIC TREATMENT, RITUXIMAB-M-CODOX-IVAC)
     Route: 065
     Dates: start: 20210626, end: 20210929
  13. IFOSFAMIDE [Suspect]
     Active Substance: IFOSFAMIDE
     Indication: Diffuse large B-cell lymphoma
     Dosage: (1ST LINE SYSTEMIC TREATMENT, RITUXIMAB-M-CODOX-IVAC)
     Route: 065
     Dates: start: 20210626, end: 20210929

REACTIONS (3)
  - Diffuse large B-cell lymphoma [Unknown]
  - Disease progression [Unknown]
  - Off label use [Unknown]
